FAERS Safety Report 23990818 (Version 2)
Quarter: 2025Q1

REPORT INFORMATION
  Report Type: Spontaneous
  Country: US (occurrence: US)
  Receive Date: 20240619
  Receipt Date: 20250210
  Transmission Date: 20250408
  Serious: Yes (Other)
  Sender: CALLIDITAS THERAPEUTICS AB
  Company Number: US-Calliditas-2024CAL01053

PATIENT
  Age: 50 Year
  Sex: Male
  Weight: 108.2 kg

DRUGS (1)
  1. TARPEYO [Suspect]
     Active Substance: BUDESONIDE
     Indication: IgA nephropathy
     Route: 048
     Dates: start: 20240516

REACTIONS (9)
  - Nausea [Recovered/Resolved]
  - Dry mouth [Unknown]
  - Neuropathy peripheral [Unknown]
  - Contusion [Unknown]
  - Rash erythematous [Unknown]
  - Headache [Not Recovered/Not Resolved]
  - Limb discomfort [Unknown]
  - Weight increased [Not Recovered/Not Resolved]
  - Peripheral swelling [Not Recovered/Not Resolved]
